FAERS Safety Report 7916612-4 (Version None)
Quarter: 2011Q4

REPORT INFORMATION
  Report Type: 
  Country: None (occurrence: None)
  Receive Date: 20111103
  Receipt Date: 20111024
  Transmission Date: 20120403
  Serious: Yes (Hospitalization, Other)
  Sender: FDA-Public Use
  Company Number: 2011028317

PATIENT
  Age: 46 Year
  Sex: Female
  Weight: 104.3273 kg

DRUGS (19)
  1. HIZENTRA [Suspect]
     Indication: IMMUNODEFICIENCY COMMON VARIABLE
     Dosage: SEE IMAGE SUBCUTANEOUS
     Route: 058
     Dates: start: 20110414
  2. HIZENTRA [Suspect]
     Indication: IMMUNODEFICIENCY COMMON VARIABLE
     Dosage: SEE IMAGE SUBCUTANEOUS
     Route: 058
     Dates: start: 20110420
  3. HIZENTRA [Suspect]
  4. HIZENTRA [Suspect]
  5. HIZENTRA [Suspect]
  6. HYDROXYZINE [Concomitant]
  7. NEURONTIN [Concomitant]
  8. POTASSIUM CHLORIDE [Concomitant]
  9. CYMBALTA [Concomitant]
  10. HIZENTRA [Suspect]
  11. LOPRESSOR [Concomitant]
  12. LORCET-HD [Concomitant]
  13. LASIX [Concomitant]
  14. SPIRONOLACTONE [Concomitant]
  15. AMBIEN [Concomitant]
  16. ACETAMINOPHEN [Concomitant]
  17. PROMETHAZINE [Concomitant]
  18. VERAPAMIL [Concomitant]
  19. FLEXERIL [Concomitant]

REACTIONS (8)
  - INJECTION SITE DISCOLOURATION [None]
  - INFUSION SITE PAIN [None]
  - URINARY TRACT INFECTION [None]
  - CELLULITIS [None]
  - TRANSIENT ISCHAEMIC ATTACK [None]
  - FATIGUE [None]
  - INFUSION SITE EXTRAVASATION [None]
  - INFUSION SITE ERYTHEMA [None]
